FAERS Safety Report 10637237 (Version 2)
Quarter: 2014Q4

REPORT INFORMATION
  Report Type: Spontaneous
  Country: JP (occurrence: JP)
  Receive Date: 20141208
  Receipt Date: 20141211
  Transmission Date: 20150529
  Serious: Yes (Death)
  Sender: FDA-Public Use
  Company Number: JP-JNJFOC-20141200755

PATIENT
  Sex: Male
  Weight: 57 kg

DRUGS (4)
  1. INVEGA [Suspect]
     Active Substance: PALIPERIDONE
     Indication: SCHIZOPHRENIA
     Route: 048
     Dates: start: 20140704
  2. DAIKENCHUUTOU (HERBAL PREPARATION) [Concomitant]
     Indication: CONSTIPATION
     Route: 048
     Dates: start: 20140704, end: 20141108
  3. MAGMITT [Concomitant]
     Active Substance: MAGNESIUM OXIDE
     Indication: CONSTIPATION
     Route: 048
     Dates: start: 20140822, end: 20141108
  4. BROTIZOLAM [Concomitant]
     Active Substance: BROTIZOLAM
     Indication: INSOMNIA
     Route: 048
     Dates: start: 20130530, end: 20141108

REACTIONS (1)
  - Acute myocardial infarction [Fatal]
